FAERS Safety Report 17396776 (Version 10)
Quarter: 2020Q3

REPORT INFORMATION
  Report Type: Spontaneous
  Country: US (occurrence: US)
  Receive Date: 20200210
  Receipt Date: 20200825
  Transmission Date: 20201102
  Serious: No
  Sender: FDA-Public Use
  Company Number: US-PFIZER INC-2020058000

PATIENT
  Age: 73 Year
  Sex: Male
  Weight: 71 kg

DRUGS (7)
  1. ASPIRIN. [Concomitant]
     Active Substance: ASPIRIN
     Dosage: UNK
  2. INLYTA [Suspect]
     Active Substance: AXITINIB
     Indication: LUNG NEOPLASM MALIGNANT
     Dosage: 10 MG, DAILY (ONE IN THE MORNING AND ONE IN THE EVENING)
  3. OMEGA 3 [Concomitant]
     Active Substance: OMEGA-3 FATTY ACIDS
     Dosage: UNK
  4. INLYTA [Suspect]
     Active Substance: AXITINIB
     Indication: RENAL CANCER
     Dosage: 5 MG, 2X/DAY (5MG 1 TABLET BY MOUTH IN THE MORNING AND ONCE IN THE EVENING)
     Route: 048
     Dates: start: 201912
  5. INLYTA [Suspect]
     Active Substance: AXITINIB
     Dosage: 5 MG
  6. INLYTA [Suspect]
     Active Substance: AXITINIB
     Dosage: 5 MG, 1X/DAY (5MG IN THE EVENING)
     Dates: start: 20200311
  7. INLYTA [Suspect]
     Active Substance: AXITINIB
     Dosage: 5 MG, 1X/DAY

REACTIONS (8)
  - Temperature intolerance [Recovered/Resolved]
  - Headache [Unknown]
  - Dysphonia [Recovered/Resolved]
  - Skin exfoliation [Recovering/Resolving]
  - Thyroid disorder [Recovered/Resolved]
  - Rash [Recovering/Resolving]
  - Sleep disorder [Unknown]
  - Circumstance or information capable of leading to medication error [Unknown]

NARRATIVE: CASE EVENT DATE: 201912
